FAERS Safety Report 7065251-9 (Version None)
Quarter: 2010Q4

REPORT INFORMATION
  Report Type: 
  Country: None (occurrence: None)
  Receive Date: 20101027
  Receipt Date: 20101018
  Transmission Date: 20110411
  Serious: Yes (Life-Threatening, Hospitalization, Other)
  Sender: FDA-Public Use
  Company Number: FR-KINGPHARMUSA00001-K201001287

PATIENT
  Age: 56 Year
  Sex: Female

DRUGS (18)
  1. ALTACE [Suspect]
     Indication: HYPERTENSION
     Dosage: 5 MG, BID
     Route: 048
  2. BISOPROLOL FUMARATE [Suspect]
     Indication: CORONARY ARTERY DISEASE
     Dosage: 5 MG, BID
     Route: 048
     Dates: start: 19870101, end: 20080601
  3. BISOPROLOL FUMARATE [Suspect]
     Dosage: UNK MG, BID
     Route: 048
     Dates: start: 20080608
  4. DOXAZOSIN MESYLATE [Suspect]
     Indication: HYPERTENSION
     Dosage: 4 MG, BID
     Route: 048
  5. DIGITOXIN [Suspect]
     Indication: ATRIAL FIBRILLATION
     Dosage: 0.105 MG ON MONDAY AND 0.07 MG FROM TUESDAY TO SUNDAY
     Route: 048
     Dates: start: 20040101, end: 20080601
  6. DIGITOXIN [Suspect]
     Dosage: UNK
     Route: 048
     Dates: start: 20080608
  7. ALLOPURINOL [Concomitant]
  8. DEKRISTOL [Concomitant]
  9. RESTEX [Concomitant]
  10. RENAGEL [Concomitant]
  11. PANTHENOL [Concomitant]
  12. SIMVASTATIN [Concomitant]
  13. AEQUAMEN [Concomitant]
  14. PHOS-EX [Concomitant]
  15. NEXIUM [Concomitant]
  16. LAXOBERAL [Concomitant]
     Dosage: UNK
     Dates: end: 20080601
  17. ELUTIT-CALCIUM [Concomitant]
     Dosage: UNK
     Dates: end: 20080601
  18. CLEXANE [Concomitant]
     Dosage: UNK
     Dates: end: 20080601

REACTIONS (5)
  - ASTHENIA [None]
  - BRADYCARDIA [None]
  - DIZZINESS [None]
  - HYPOTENSION [None]
  - TACHYARRHYTHMIA [None]
